FAERS Safety Report 25912873 (Version 1)
Quarter: 2025Q4

REPORT INFORMATION
  Report Type: Spontaneous
  Country: EU (occurrence: EU)
  Receive Date: 20251013
  Receipt Date: 20251013
  Transmission Date: 20260117
  Serious: Yes (Other)
  Sender: TEVA
  Company Number: None

PATIENT
  Age: 95 Year
  Sex: Male

DRUGS (4)
  1. CLOPIDOGREL [Suspect]
     Active Substance: CLOPIDOGREL BISULFATE
     Indication: Cerebrovascular accident prophylaxis
     Dosage: CLOPIDOGREL (7300A)
     Route: 048
     Dates: start: 20250629, end: 20250804
  2. PROSCAR [Concomitant]
     Active Substance: FINASTERIDE
     Indication: Benign prostatic hyperplasia
     Dosage: 28 TABLETS
     Route: 048
  3. PERINDOPRIL [Concomitant]
     Active Substance: PERINDOPRIL
     Indication: Hypertension
     Dosage: PERINDOPRIL (1051A)
     Route: 065
  4. EXFORGE HCT [Concomitant]
     Active Substance: AMLODIPINE BESYLATE\HYDROCHLOROTHIAZIDE\VALSARTAN
     Indication: Hypertension
     Dosage: 5 MG/160 MG/25 MG
     Route: 048

REACTIONS (2)
  - Subdural haematoma [Not Recovered/Not Resolved]
  - Cerebral haematoma [Not Recovered/Not Resolved]

NARRATIVE: CASE EVENT DATE: 20250804
